FAERS Safety Report 12420207 (Version 1)
Quarter: 2016Q2

REPORT INFORMATION
  Report Type: Spontaneous
  Country: IE (occurrence: IE)
  Receive Date: 20160531
  Receipt Date: 20160531
  Transmission Date: 20160815
  Serious: Yes (Death)
  Sender: FDA-Public Use
  Company Number: IE-SANOFI-AVENTIS-200713797EU

PATIENT
  Age: 61 Year
  Sex: Male

DRUGS (19)
  1. TARGOCID [Suspect]
     Active Substance: TEICOPLANIN
     Indication: PROPHYLAXIS
     Route: 065
  2. OMEPRAZOLE. [Suspect]
     Active Substance: OMEPRAZOLE
     Indication: PROPHYLAXIS
     Route: 042
  3. INNOHEP [Suspect]
     Active Substance: TINZAPARIN SODIUM
     Indication: PROPHYLAXIS
     Route: 065
     Dates: start: 20070622
  4. SEPTRIN [Suspect]
     Active Substance: SULFAMETHOXAZOLE\TRIMETHOPRIM
     Indication: PROPHYLAXIS
     Route: 065
  5. BISOPROLOL [Concomitant]
     Active Substance: BISOPROLOL
  6. FUCIDIN [Concomitant]
     Active Substance: FUSIDIC ACID
  7. VALSARTAN. [Concomitant]
     Active Substance: VALSARTAN
  8. ZOTON [Suspect]
     Active Substance: LANSOPRAZOLE
     Indication: PROPHYLAXIS AGAINST GASTROINTESTINAL ULCER
     Dosage: DOSAGE FORM:ORODISPERSIBLE TABET
     Route: 048
     Dates: start: 20070528, end: 20070709
  9. ASPIRIN. [Concomitant]
     Active Substance: ASPIRIN
  10. INDAPAMIDE. [Concomitant]
     Active Substance: INDAPAMIDE
  11. DIFENE [Suspect]
     Active Substance: DICLOFENAC SODIUM
     Indication: PROPHYLAXIS
     Route: 065
  12. HEPARIN SODIUM. [Suspect]
     Active Substance: HEPARIN SODIUM
     Indication: PROPHYLAXIS
     Route: 042
  13. ZYVOX [Suspect]
     Active Substance: LINEZOLID
     Indication: PROPHYLAXIS
     Route: 065
  14. FLAGYL [Concomitant]
     Active Substance: METRONIDAZOLE\METRONIDAZOLE HYDROCHLORIDE
  15. VANCOMYCIN HYDROCHLORIDE. [Suspect]
     Active Substance: VANCOMYCIN HYDROCHLORIDE
     Indication: PROPHYLAXIS
     Route: 048
  16. SEPTRIN [Concomitant]
     Active Substance: SULFAMETHOXAZOLE\TRIMETHOPRIM
  17. CLEXANE SYRINGES [Suspect]
     Active Substance: ENOXAPARIN SODIUM
     Indication: PROPHYLAXIS
     Route: 042
     Dates: end: 20070620
  18. VELOSEF [Suspect]
     Active Substance: CEPHRADINE
     Indication: PROPHYLAXIS
     Route: 048
     Dates: start: 20070625, end: 20070626
  19. LINEZOLID. [Concomitant]
     Active Substance: LINEZOLID

REACTIONS (1)
  - Toxic epidermal necrolysis [Fatal]

NARRATIVE: CASE EVENT DATE: 20070618
